FAERS Safety Report 24952798 (Version 2)
Quarter: 2025Q1

REPORT INFORMATION
  Report Type: Spontaneous
  Country: US (occurrence: US)
  Receive Date: 20250211
  Receipt Date: 20250306
  Transmission Date: 20250409
  Serious: No
  Sender: ROCHE
  Company Number: US-ROCHE-10000198686

PATIENT
  Sex: Female

DRUGS (8)
  1. XOLAIR PFS [Suspect]
     Active Substance: OMALIZUMAB
     Indication: Asthma
     Dosage: INJECT 375MG SUBCUTANEOUSLY EVERY 14 DAYS
     Route: 058
  2. XOLAIR PFS [Suspect]
     Active Substance: OMALIZUMAB
  3. ADVAIR DISKU AEP 100-50MC [Concomitant]
  4. AZELASTINE-F SUS 137-50MC [Concomitant]
  5. CENTRUM ADUL TAB [Concomitant]
  6. FAMOTIDINE TAB 40MG [Concomitant]
  7. FERROUS SULF TBE 324MG [Concomitant]
  8. FLONASE ALLE SUS 50MCG/AC [Concomitant]

REACTIONS (2)
  - Dysgeusia [Not Recovered/Not Resolved]
  - Hypersensitivity [Not Recovered/Not Resolved]
